FAERS Safety Report 4979000-9 (Version None)
Quarter: 2006Q2

REPORT INFORMATION
  Report Type: 
  Country: None (occurrence: None)
  Receive Date: 20060419
  Receipt Date: 20060419
  Transmission Date: 20061013
  Serious: Yes (Hospitalization, Disabling)
  Sender: FDA-Public Use
  Company Number: None

PATIENT
  Age: 54 Year
  Sex: Male
  Weight: 103.4 kg

DRUGS (2)
  1. CETACAINE [Suspect]
     Indication: INTUBATION
     Dosage: TOP
     Route: 061
     Dates: start: 20060130, end: 20060130
  2. CETACAINE [Suspect]
     Indication: LOCAL ANAESTHESIA
     Dosage: TOP
     Route: 061
     Dates: start: 20060130, end: 20060130

REACTIONS (2)
  - BLOOD METHAEMOGLOBIN PRESENT [None]
  - SKIN DISCOLOURATION [None]
